FAERS Safety Report 8201294-7 (Version None)
Quarter: 2012Q1

REPORT INFORMATION
  Report Type: 
  Country: None (occurrence: None)
  Receive Date: 20120312
  Receipt Date: 20120308
  Transmission Date: 20120608
  Serious: Yes (Death)
  Sender: FDA-Public Use
  Company Number: PHEH2012US001391

PATIENT
  Sex: Male
  Weight: 72.562 kg

DRUGS (9)
  1. TASIGNA [Suspect]
     Indication: CHRONIC MYELOID LEUKAEMIA
     Dosage: 300 MG, BID
     Route: 048
     Dates: start: 20101001
  2. HYDROXYUREA [Concomitant]
  3. PRILOSEC [Concomitant]
     Dosage: 70 MG, DAILY
  4. ACETAMINOPHEN [Concomitant]
  5. PLAVIX [Concomitant]
     Indication: CORONARY ARTERY DISEASE
     Dosage: 75 MG, DAILY
  6. TASIGNA [Suspect]
  7. ALBUTEROL [Concomitant]
  8. SYMBICORT [Concomitant]
  9. ASPIRIN [Concomitant]
     Indication: CORONARY ARTERY DISEASE
     Dosage: 81 MG, DAILY

REACTIONS (12)
  - HAEMOGLOBIN DECREASED [None]
  - GLOBULINS INCREASED [None]
  - BLOOD CHOLESTEROL INCREASED [None]
  - DEATH [None]
  - BLOOD PRESSURE DIASTOLIC DECREASED [None]
  - BACK PAIN [None]
  - BLOOD UREA INCREASED [None]
  - FATIGUE [None]
  - BLOOD GLUCOSE INCREASED [None]
  - BLOOD SODIUM DECREASED [None]
  - SKIN HYPERPIGMENTATION [None]
  - BLOOD CREATININE INCREASED [None]
